FAERS Safety Report 7125990-8 (Version None)
Quarter: 2010Q4

REPORT INFORMATION
  Report Type: 
  Country: None (occurrence: None)
  Receive Date: 20101129
  Receipt Date: 20101117
  Transmission Date: 20110411
  Serious: Yes (Other)
  Sender: FDA-Public Use
  Company Number: US-ROCHE-742908

PATIENT

DRUGS (3)
  1. PEGASYS [Suspect]
     Indication: HEPATITIS C
     Route: 065
     Dates: start: 20090201, end: 20100801
  2. RIBAVIRIN [Suspect]
     Indication: HEPATITIS C
     Route: 048
     Dates: start: 20090201, end: 20100801
  3. INFERGEN [Suspect]
     Indication: HEPATITIS C
     Route: 065

REACTIONS (3)
  - RETINITIS [None]
  - TREATMENT FAILURE [None]
  - VIRAL LOAD INCREASED [None]
